FAERS Safety Report 5063074-3 (Version None)
Quarter: 2006Q3

REPORT INFORMATION
  Report Type: 
  Country: None (occurrence: None)
  Receive Date: 20060724
  Receipt Date: 20060711
  Transmission Date: 20061208
  Serious: Yes (Other)
  Sender: FDA-Public Use
  Company Number: HQWYE893413JUL06

PATIENT
  Sex: Female

DRUGS (2)
  1. PREMARIN [Suspect]
     Dosage: .625 MG, 12 MOS. (1 YEAR)
     Dates: start: 19940101, end: 19950501
  2. PROVERA [Suspect]
     Dosage: 2.5 MG

REACTIONS (1)
  - BREAST CANCER FEMALE [None]
